FAERS Safety Report 8468301 (Version 4)
Quarter: 2012Q4

REPORT INFORMATION
  Report Type: 
  Country: US (occurrence: US)
  Receive Date: 20120320
  Receipt Date: 20121203
  Transmission Date: 20130627
  Serious: Yes (Hospitalization)
  Sender: FDA-Public Use
  Company Number: US-PFIZER INC-2012037607

PATIENT
  Age: 81 Year
  Sex: Female
  Weight: 50.79 kg

DRUGS (9)
  1. FESOTERODINE [Suspect]
     Indication: OVERACTIVE BLADDER
     Dosage: UNK
     Route: 048
     Dates: start: 20111117, end: 20120124
  2. FESOTERODINE [Suspect]
     Dosage: UNK
     Route: 048
     Dates: start: 20120125, end: 20120209
  3. ASPIRIN [Concomitant]
     Indication: PROPHYLAXIS
     Dosage: 81 mg, 1x/day
     Route: 048
     Dates: start: 2006
  4. METFORMIN [Concomitant]
     Indication: DIABETES MELLITUS
     Dosage: 1000 mg, 1x/day
     Route: 048
     Dates: start: 2008
  5. GLYBURIDE [Concomitant]
     Indication: DIABETES MELLITUS
     Dosage: 2 mg, 1x/day
     Route: 048
     Dates: start: 2009
  6. PRAVASTATIN [Concomitant]
     Indication: HYPERCHOLESTEROLAEMIA
     Dosage: 40 mg, 1x/day
     Route: 048
     Dates: start: 2008
  7. ATENOLOL [Concomitant]
     Indication: HYPERTENSION
     Dosage: 10 mg, 1x/day
     Route: 048
     Dates: start: 2008
  8. TYLENOL [Concomitant]
     Indication: PAIN IN EXTREMITY
     Dosage: 500 mg, 2x/day as needed
     Route: 048
     Dates: start: 201109
  9. SPIRIVA [Concomitant]
     Indication: COPD
     Dosage: UNK
     Route: 055
     Dates: start: 2008

REACTIONS (1)
  - Syncope [Recovered/Resolved]
